FAERS Safety Report 7621695-5 (Version None)
Quarter: 2011Q3

REPORT INFORMATION
  Report Type: 
  Country: None (occurrence: None)
  Receive Date: 20110719
  Receipt Date: 20110713
  Transmission Date: 20111222
  Serious: Yes (Hospitalization)
  Sender: FDA-Public Use
  Company Number: JP-MERCK-1107USA01985

PATIENT
  Age: 85 Year
  Sex: Female

DRUGS (8)
  1. FOSAMAX [Suspect]
     Route: 048
     Dates: end: 20101027
  2. ROKIFEN [Concomitant]
     Indication: BACK PAIN
     Route: 048
  3. FOSAMAX [Suspect]
     Indication: OSTEOPOROSIS
     Route: 048
  4. TEPRENONE [Concomitant]
     Indication: BACK PAIN
     Route: 048
  5. AROWTOHL [Concomitant]
     Route: 048
  6. AMLODIPINE BESYLATE [Concomitant]
     Indication: HYPERTENSION
     Route: 048
  7. ENALAPRIL MALEATE [Concomitant]
     Indication: HYPERTENSION
     Route: 048
  8. AMLODIPINE BESYLATE [Concomitant]
     Route: 048

REACTIONS (1)
  - FEMUR FRACTURE [None]
